FAERS Safety Report 18903714 (Version 1)
Quarter: 2021Q1

REPORT INFORMATION
  Report Type: Spontaneous
  Country: US (occurrence: US)
  Receive Date: 20210216
  Receipt Date: 20210216
  Transmission Date: 20210420
  Serious: Yes (Hospitalization)
  Sender: FDA-Public Use
  Company Number: None

PATIENT
  Age: 73 Year
  Sex: Female

DRUGS (4)
  1. ETOPOSIDE. [Suspect]
     Active Substance: ETOPOSIDE
     Indication: BREAST CANCER FEMALE
     Dosage: ?          OTHER FREQUENCY:50MG OR 100MG QOD;?
     Route: 048
     Dates: start: 20210116
  2. PRAVASTATIN. [Concomitant]
     Active Substance: PRAVASTATIN
  3. EXEMESTANE. [Concomitant]
     Active Substance: EXEMESTANE
  4. LISINOPRIL HCTZ [Concomitant]
     Active Substance: HYDROCHLOROTHIAZIDE\LISINOPRIL

REACTIONS (2)
  - Infection [None]
  - White blood cell count decreased [None]

NARRATIVE: CASE EVENT DATE: 20210119
